FAERS Safety Report 13254531 (Version 2)
Quarter: 2017Q2

REPORT INFORMATION
  Report Type: Spontaneous
  Country: US (occurrence: US)
  Receive Date: 20170221
  Receipt Date: 20170420
  Transmission Date: 20170830
  Serious: Yes (Hospitalization, Other)
  Sender: FDA-Public Use
  Company Number: US-BRISTOL-MYERS SQUIBB COMPANY-BMS-2017-012901

PATIENT
  Sex: Female
  Weight: 129.25 kg

DRUGS (3)
  1. ELIQUIS [Suspect]
     Active Substance: APIXABAN
     Indication: PRODUCT USED FOR UNKNOWN INDICATION
     Dosage: 5 MG, BID
     Route: 048
     Dates: start: 2017
  2. BABY ASPIRIN [Concomitant]
     Active Substance: ASPIRIN
     Indication: PRODUCT USED FOR UNKNOWN INDICATION
     Route: 065
  3. ELIQUIS [Suspect]
     Active Substance: APIXABAN
     Indication: PULMONARY EMBOLISM
     Dosage: 10 MG, UNK
     Route: 065
     Dates: start: 2017

REACTIONS (10)
  - Ligament rupture [Unknown]
  - Asthenia [Unknown]
  - Loss of consciousness [Unknown]
  - Surgery [Unknown]
  - Pulmonary thrombosis [Unknown]
  - Influenza [Unknown]
  - Brain neoplasm [Unknown]
  - Dizziness [Unknown]
  - Brain operation [Unknown]
  - Body height decreased [Unknown]
